FAERS Safety Report 8536540-3 (Version None)
Quarter: 2012Q3

REPORT INFORMATION
  Report Type: 
  Country: None (occurrence: None)
  Receive Date: 20120718
  Receipt Date: 20120718
  Transmission Date: 20120928
  Serious: Yes (Other)
  Sender: FDA-Public Use
  Company Number: None

PATIENT
  Age: 61 Year
  Sex: Male
  Weight: 90.7194 kg

DRUGS (1)
  1. CREST PRO-HEALTH PROCTOR + GAMBLE [Suspect]

REACTIONS (5)
  - ORAL MUCOSAL EXFOLIATION [None]
  - SWOLLEN TONGUE [None]
  - OEDEMA MOUTH [None]
  - PRURITUS [None]
  - DISCOMFORT [None]
